FAERS Safety Report 8433072-8 (Version None)
Quarter: 2012Q2

REPORT INFORMATION
  Report Type: 
  Country: None (occurrence: None)
  Receive Date: 20120613
  Receipt Date: 20120607
  Transmission Date: 20120825
  Serious: Yes (Hospitalization)
  Sender: FDA-Public Use
  Company Number: BR-ROCHE-1076922

PATIENT
  Sex: Male
  Weight: 84 kg

DRUGS (2)
  1. ROFERON-A [Suspect]
     Indication: METASTATIC RENAL CELL CARCINOMA
     Dates: start: 20100526, end: 20101015
  2. AVASTIN [Suspect]
     Indication: METASTATIC RENAL CELL CARCINOMA
     Dates: start: 20100526, end: 20101015

REACTIONS (1)
  - PANCREATITIS [None]
